FAERS Safety Report 5796614-7 (Version None)
Quarter: 2008Q3

REPORT INFORMATION
  Report Type: 
  Country: None (occurrence: None)
  Receive Date: 20080701
  Receipt Date: 20080620
  Transmission Date: 20090109
  Serious: Yes (Other)
  Sender: FDA-Public Use
  Company Number: CH-ROCHE-572121

PATIENT
  Age: 79 Year
  Sex: Male

DRUGS (6)
  1. ROCEPHIN [Suspect]
     Indication: DRUG USE FOR UNKNOWN INDICATION
     Route: 042
     Dates: start: 20080414, end: 20080418
  2. TEGRETOL [Suspect]
     Indication: DRUG USE FOR UNKNOWN INDICATION
     Route: 048
     Dates: start: 20080323, end: 20080426
  3. SEROQUEL [Suspect]
     Indication: DRUG USE FOR UNKNOWN INDICATION
     Dosage: FORM: FILM COATED TABLET
     Route: 065
     Dates: start: 20070101, end: 20080415
  4. VITARUBIN [Concomitant]
     Dosage: FORM: VIAL
     Route: 058
     Dates: start: 20080417
  5. CLEXANE [Concomitant]
     Route: 058
     Dates: start: 20080323, end: 20080506
  6. MERONEM [Concomitant]
     Route: 065
     Dates: start: 20080419, end: 20080424

REACTIONS (1)
  - DRUG RASH WITH EOSINOPHILIA AND SYSTEMIC SYMPTOMS [None]
